FAERS Safety Report 17995225 (Version 2)
Quarter: 2020Q3

REPORT INFORMATION
  Report Type: Spontaneous
  Country: US (occurrence: US)
  Receive Date: 20200708
  Receipt Date: 20200714
  Transmission Date: 20201103
  Serious: Yes (Other)
  Sender: FDA-Public Use
  Company Number: US-PFIZER INC-2020257941

PATIENT
  Sex: Female

DRUGS (2)
  1. HEPARIN SODIUM. [Suspect]
     Active Substance: HEPARIN SODIUM
     Dosage: UNK
     Route: 058
  2. HEPARIN SODIUM. [Suspect]
     Active Substance: HEPARIN SODIUM
     Dosage: 6000 IU
     Route: 042

REACTIONS (4)
  - Confusional state [Recovered/Resolved]
  - Skin necrosis [Unknown]
  - Pulmonary embolism [Unknown]
  - Hypotension [Recovered/Resolved]
